FAERS Safety Report 14254112 (Version 3)
Quarter: 2018Q1

REPORT INFORMATION
  Report Type: Spontaneous
  Country: SK (occurrence: SK)
  Receive Date: 20171205
  Receipt Date: 20180314
  Transmission Date: 20180508
  Serious: Yes (Death, Hospitalization, Other)
  Sender: FDA-Public Use
  Company Number: SK-CELGENEUS-SVK-20171107711

PATIENT
  Age: 65 Year
  Sex: Female

DRUGS (2)
  1. VIDAZA [Suspect]
     Active Substance: AZACITIDINE
     Dosage: DOSE REDUCED
     Route: 065
  2. VIDAZA [Suspect]
     Active Substance: AZACITIDINE
     Indication: ACUTE MYELOID LEUKAEMIA
     Dosage: 75 MILLIGRAM/SQ. METER
     Route: 065
     Dates: start: 20160402, end: 201704

REACTIONS (10)
  - Anaemia [Recovered/Resolved]
  - Perirectal abscess [Unknown]
  - Urinary tract infection [Unknown]
  - Neutropenia [Recovered/Resolved]
  - Gingivitis [Unknown]
  - Acute myeloid leukaemia recurrent [Unknown]
  - Leukocytosis [Unknown]
  - Thrombocytopenia [Recovered/Resolved]
  - Acute myeloid leukaemia [Fatal]
  - Constipation [Unknown]
